FAERS Safety Report 9484184 (Version 1)
Quarter: 2013Q3

REPORT INFORMATION
  Report Type: Spontaneous
  Country: US (occurrence: US)
  Receive Date: 20130828
  Receipt Date: 20130828
  Transmission Date: 20140515
  Serious: Yes (Other)
  Sender: FDA-Public Use
  Company Number: US-AMGEN-KDL385486

PATIENT
  Age: 69 Year
  Sex: Female
  Weight: 69.9 kg

DRUGS (16)
  1. ENBREL [Suspect]
     Indication: PRODUCT USED FOR UNKNOWN INDICATION
     Dosage: 50 MG, QWK
     Route: 058
  2. IBANDRONATE [Concomitant]
     Dosage: 150 MG, UNK
  3. CELECOXIB [Concomitant]
     Dosage: 200 MG, UNK
  4. ASTELIN [Concomitant]
     Dosage: 137 ?G, UNK
     Route: 045
  5. AMLODIPINE [Concomitant]
     Dosage: 5 MG, UNK
  6. PREDNISONE [Concomitant]
     Dosage: 5 MG, UNK
  7. ATENOLOL [Concomitant]
     Dosage: 50 MG, UNK
  8. LISINOPRIL [Concomitant]
     Dosage: 40 MG, UNK
  9. ASPIRIN [Concomitant]
     Dosage: 81 MG, UNK
  10. FOLIC ACID [Concomitant]
     Dosage: 1 MG, UNK
  11. ESOMEPRAZOLE MAGNESIUM [Concomitant]
     Dosage: 40 MG, UNK
  12. SPIRONOLACTONE [Concomitant]
     Dosage: 25 MG, UNK
  13. ESCITALOPRAM [Concomitant]
     Dosage: 20 MG, UNK
  14. GUAIFENESIN [Concomitant]
     Dosage: UNK UNK, UNK
  15. DOCUSATE SODIUM [Concomitant]
     Dosage: 100 MG, UNK
  16. UNSPECIFIED MEDICATION [Concomitant]
     Dosage: UNK UNK, UNK

REACTIONS (1)
  - Ophthalmic herpes zoster [Recovered/Resolved]
